FAERS Safety Report 22289134 (Version 1)
Quarter: 2023Q2

REPORT INFORMATION
  Report Type: Spontaneous
  Country: FR (occurrence: FR)
  Receive Date: 20230505
  Receipt Date: 20230505
  Transmission Date: 20230721
  Serious: Yes (Death)
  Sender: FDA-Public Use
  Company Number: None

PATIENT
  Age: 85 Year
  Sex: Female

DRUGS (3)
  1. AMIODARONE [Interacting]
     Active Substance: AMIODARONE
     Indication: Atrial fibrillation
     Dosage: 200 MILLIGRAM, 4 TIMES A WEEK
     Route: 048
  2. ELIQUIS [Interacting]
     Active Substance: APIXABAN
     Indication: Atrial fibrillation
     Dosage: 2 DOSAGE FORM, QD
     Route: 048
  3. ESCITALOPRAM OXALATE [Interacting]
     Active Substance: ESCITALOPRAM OXALATE
     Indication: Product used for unknown indication
     Dosage: 5 MILLIGRAM, QD
     Route: 048

REACTIONS (2)
  - Cerebral haematoma [Fatal]
  - Drug interaction [Unknown]

NARRATIVE: CASE EVENT DATE: 20230415
